FAERS Safety Report 11230510 (Version 1)
Quarter: 2015Q2

REPORT INFORMATION
  Report Type: Spontaneous
  Country: US (occurrence: None)
  Receive Date: 20150629
  Receipt Date: 20150629
  Transmission Date: 20150821
  Serious: No
  Sender: FDA-Public Use
  Company Number: None

PATIENT

DRUGS (3)
  1. DEXTROSE 50% [Suspect]
     Active Substance: DEXTROSE
     Dosage: 50% (25 GRAMS/50 ML)
  2. MANNITOL 25% MANNITOL [Suspect]
     Active Substance: MANNITOL
     Dosage: 25%
     Route: 042
  3. MANNITOL 25% [Suspect]
     Active Substance: MANNITOL
     Dosage: 25%
     Route: 042

REACTIONS (2)
  - Product label confusion [None]
  - Circumstance or information capable of leading to medication error [None]
